FAERS Safety Report 18157442 (Version 1)
Quarter: 2020Q3

REPORT INFORMATION
  Report Type: Spontaneous
  Country: US (occurrence: US)
  Receive Date: 20200817
  Receipt Date: 20200817
  Transmission Date: 20201103
  Serious: No
  Sender: FDA-Public Use
  Company Number: US-SPECGX-T202000493

PATIENT
  Age: 92 Year
  Sex: Female

DRUGS (1)
  1. OXYCODONE [Suspect]
     Active Substance: OXYCODONE
     Indication: PRODUCT USED FOR UNKNOWN INDICATION
     Dosage: 15 MILLIGRAM, QD (5 MG, 3 TABLETS, DAILY)
     Route: 065

REACTIONS (2)
  - Dry throat [Unknown]
  - Dry mouth [Unknown]

NARRATIVE: CASE EVENT DATE: 202002
